FAERS Safety Report 22235364 (Version 1)
Quarter: 2023Q2

REPORT INFORMATION
  Report Type: Spontaneous
  Country: US (occurrence: None)
  Receive Date: 20230419
  Receipt Date: 20230419
  Transmission Date: 20230722
  Serious: No
  Sender: FDA-Public Use
  Company Number: None

PATIENT
  Age: 74 Year
  Sex: Female
  Weight: 45.81 kg

DRUGS (15)
  1. CAPECITABINE [Suspect]
     Active Substance: CAPECITABINE
     Indication: Pancreatic carcinoma
     Dosage: 300MG TWICE DAILY ORAL
     Route: 048
     Dates: start: 202205
  2. CAPECITABINE [Suspect]
     Active Substance: CAPECITABINE
     Indication: Pancreatic carcinoma
     Dosage: 1000MG TWICE DAILY ORAL
     Route: 048
     Dates: start: 202205
  3. AMLODIPINE [Concomitant]
  4. ATORVASTATIN [Concomitant]
  5. COLESEVELAN [Concomitant]
  6. CREON [Concomitant]
  7. DIPHENOXYLATE-ATROPINE [Concomitant]
  8. IMODIUM AD [Concomitant]
     Active Substance: LOPERAMIDE HYDROCHLORIDE
  9. LEVOFLOXACIN [Concomitant]
  10. LIDOCAINE-PRILOCAINE [Concomitant]
  11. LOSARTAN [Concomitant]
  12. WELCHOL [Concomitant]
  13. XARELTO [Concomitant]
     Active Substance: RIVAROXABAN
  14. ZETIA [Concomitant]
     Active Substance: EZETIMIBE
  15. ZOFRAN [Concomitant]
     Active Substance: ONDANSETRON HYDROCHLORIDE

REACTIONS (2)
  - Disease progression [None]
  - Pancreatic carcinoma [None]
